FAERS Safety Report 23159748 (Version 3)
Quarter: 2024Q2

REPORT INFORMATION
  Report Type: Report from Study
  Country: US (occurrence: US)
  Receive Date: 20231108
  Receipt Date: 20240523
  Transmission Date: 20240716
  Serious: Yes (Other)
  Sender: FDA-Public Use
  Company Number: US-UCBSA-2023013481

PATIENT
  Age: 4 Year
  Sex: Female
  Weight: 27.3 kg

DRUGS (4)
  1. FINTEPLA [Suspect]
     Active Substance: FENFLURAMINE
     Indication: Severe myoclonic epilepsy of infancy
     Dosage: 4 MILLILITER, 2X/DAY (BID)/17.6 MG/DAY
     Route: 048
     Dates: start: 2021
  2. FINTEPLA [Suspect]
     Active Substance: FENFLURAMINE
     Dosage: 4 MILLILITER, 2X/DAY (BID)/17.6 MG/DAY
     Route: 048
  3. FINTEPLA [Suspect]
     Active Substance: FENFLURAMINE
     Dosage: 4 MILLILITER, 2X/DAY (BID)
     Route: 048
  4. FINTEPLA [Suspect]
     Active Substance: FENFLURAMINE
     Dosage: 4 MILLILITER, 2X/DAY (BID)
     Route: 048

REACTIONS (5)
  - Vagal nerve stimulator implantation [Recovered/Resolved]
  - Tricuspid valve incompetence [Not Recovered/Not Resolved]
  - Seizure [Recovered/Resolved]
  - Skin infection [Not Recovered/Not Resolved]
  - Arthropod sting [Not Recovered/Not Resolved]

NARRATIVE: CASE EVENT DATE: 20230303
